FAERS Safety Report 7761339-5 (Version None)
Quarter: 2011Q3

REPORT INFORMATION
  Report Type: 
  Country: None (occurrence: None)
  Receive Date: 20110920
  Receipt Date: 20110915
  Transmission Date: 20111222
  Serious: No
  Sender: FDA-Public Use
  Company Number: US-PFIZER INC-2011220116

PATIENT
  Sex: Male

DRUGS (2)
  1. ADVIL LIQUI-GELS [Suspect]
     Dosage: 4 CAPSULES OF 200 MG, UNK
     Route: 048
  2. ADVIL LIQUI-GELS [Suspect]
     Dosage: 200 MG, UNK
     Route: 048

REACTIONS (2)
  - HYPOAESTHESIA [None]
  - INCORRECT DOSE ADMINISTERED [None]
